FAERS Safety Report 8603835-4 (Version None)
Quarter: 2012Q3

REPORT INFORMATION
  Report Type: 
  Country: None (occurrence: None)
  Receive Date: 20120818
  Receipt Date: 20120319
  Transmission Date: 20120928
  Serious: Yes (Disabling)
  Sender: FDA-Public Use
  Company Number: PHHY2012RO014608

PATIENT
  Sex: Male

DRUGS (1)
  1. ZOMETA [Suspect]
     Dosage: 4 MG/5ML, QMO
     Dates: start: 20090401

REACTIONS (4)
  - APHAGIA [None]
  - OSTEONECROSIS OF JAW [None]
  - PAIN IN JAW [None]
  - EXPOSED BONE IN JAW [None]
